FAERS Safety Report 4435243-4 (Version None)
Quarter: 2004Q3

REPORT INFORMATION
  Report Type: 
  Country: None (occurrence: None)
  Receive Date: 20040827
  Receipt Date: 20040819
  Transmission Date: 20050211
  Serious: Yes (Other)
  Sender: FDA-Public Use
  Company Number: GB-GLAXOSMITHKLINE-B0343025A

PATIENT
  Sex: Female

DRUGS (2)
  1. LAMOTRIGINE [Suspect]
     Dosage: 25MG THREE TIMES PER DAY
  2. PREDNISOLONE [Concomitant]
     Dosage: 2MG PER DAY
     Route: 065

REACTIONS (1)
  - HEPATIC STEATOSIS [None]
